FAERS Safety Report 7035451-2 (Version None)
Quarter: 2010Q4

REPORT INFORMATION
  Report Type: 
  Country: None (occurrence: None)
  Receive Date: 20101008
  Receipt Date: 20100927
  Transmission Date: 20110411
  Serious: Yes (Other)
  Sender: FDA-Public Use
  Company Number: US-PFIZER INC-2010122706

PATIENT
  Sex: Female
  Weight: 68.027 kg

DRUGS (3)
  1. LYRICA [Suspect]
     Indication: MIGRAINE
     Dosage: 50 OR 75MG, 3X/DAY
     Route: 048
  2. ESTRADIOL [Concomitant]
     Indication: HORMONE REPLACEMENT THERAPY
     Dosage: 2 MG, 1X/DAY
     Route: 048
  3. MULTI-VITAMINS [Concomitant]
     Dosage: UNK
     Route: 048

REACTIONS (17)
  - BLOOD PRESSURE INCREASED [None]
  - BONE PAIN [None]
  - CONSTIPATION [None]
  - CRYING [None]
  - DECREASED APPETITE [None]
  - DEPRESSION [None]
  - DRUG INEFFECTIVE [None]
  - DRY MOUTH [None]
  - FEELING JITTERY [None]
  - HYPERSENSITIVITY [None]
  - INFLAMMATION [None]
  - INSOMNIA [None]
  - NERVOUSNESS [None]
  - PANIC REACTION [None]
  - PARAESTHESIA [None]
  - PRURITUS GENERALISED [None]
  - SOMNOLENCE [None]
